FAERS Safety Report 19094043 (Version 2)
Quarter: 2021Q2

REPORT INFORMATION
  Report Type: Spontaneous
  Country: HU (occurrence: HU)
  Receive Date: 20210405
  Receipt Date: 20210507
  Transmission Date: 20210717
  Serious: Yes (Life-Threatening, Other)
  Sender: FDA-Public Use
  Company Number: HU-BAUSCH-BL-2021-010635

PATIENT
  Age: 44 Year
  Sex: Male
  Weight: 140 kg

DRUGS (6)
  1. METFORMIN HYDROCHLORIDE. [Suspect]
     Active Substance: METFORMIN HYDROCHLORIDE
     Indication: DIABETES MELLITUS
     Route: 065
     Dates: start: 201811
  2. GLICLAZIDE [Suspect]
     Active Substance: GLICLAZIDE
     Indication: GLYCOSYLATED HAEMOGLOBIN
     Route: 065
     Dates: start: 20201212
  3. TASIGNA [Suspect]
     Active Substance: NILOTINIB
     Indication: CHRONIC MYELOID LEUKAEMIA
     Route: 065
     Dates: start: 20201212, end: 20210302
  4. ATORVASTATIN [Concomitant]
     Active Substance: ATORVASTATIN
     Indication: DYSLIPIDAEMIA
     Route: 065
     Dates: start: 201606
  5. HYDROXYUREA. [Concomitant]
     Active Substance: HYDROXYUREA
     Indication: CYTOREDUCTIVE SURGERY
     Route: 065
  6. TASIGNA [Suspect]
     Active Substance: NILOTINIB
     Route: 065
     Dates: start: 20150306

REACTIONS (9)
  - Glycosylated haemoglobin increased [Unknown]
  - Nephrolithiasis [Unknown]
  - Body mass index increased [Unknown]
  - Obstruction [Unknown]
  - Diabetes mellitus [Unknown]
  - Weight increased [Unknown]
  - Urosepsis [Unknown]
  - Platelet count decreased [Unknown]
  - Depression [Unknown]

NARRATIVE: CASE EVENT DATE: 202003
